FAERS Safety Report 22336462 (Version 3)
Quarter: 2023Q2

REPORT INFORMATION
  Report Type: Report from Study
  Country: US (occurrence: US)
  Receive Date: 20230518
  Receipt Date: 20230526
  Transmission Date: 20230721
  Serious: No
  Sender: FDA-Public Use
  Company Number: US-002147023-NVSC2023US111613

PATIENT
  Sex: Female
  Weight: 63.503 kg

DRUGS (7)
  1. METHOTREXATE [Suspect]
     Active Substance: METHOTREXATE
     Indication: Psoriasis
     Dosage: UNK
     Route: 065
  2. METHOTREXATE [Suspect]
     Active Substance: METHOTREXATE
     Dosage: 15 MG, QW
     Route: 065
     Dates: start: 201804
  3. DESONIDE [Suspect]
     Active Substance: DESONIDE
     Indication: Psoriasis
     Dosage: UNK
     Route: 065
     Dates: start: 20220929
  4. MOMETASONE [Suspect]
     Active Substance: MOMETASONE
     Indication: Psoriasis
     Route: 065
  5. TRIAMCINOLONE [Suspect]
     Active Substance: TRIAMCINOLONE
     Indication: Psoriasis
     Route: 065
  6. FOLIC ACID [Suspect]
     Active Substance: FOLIC ACID
     Indication: Psoriasis
     Route: 065
  7. PROTOPIC [Suspect]
     Active Substance: TACROLIMUS
     Indication: Psoriasis
     Dosage: UNK
     Route: 065
     Dates: start: 20220929

REACTIONS (3)
  - Streptococcal infection [Recovering/Resolving]
  - Product use in unapproved indication [Unknown]
  - Treatment failure [Recovering/Resolving]
